FAERS Safety Report 9342914 (Version 2)
Quarter: 2013Q3

REPORT INFORMATION
  Report Type: Report from Study
  Country: DE (occurrence: DE)
  Receive Date: 20130611
  Receipt Date: 20130709
  Transmission Date: 20140515
  Serious: Yes (Hospitalization)
  Sender: FDA-Public Use
  Company Number: DE-GLAXOSMITHKLINE-Z0016431E

PATIENT
  Age: 39 Year
  Sex: Female
  Weight: 117 kg

DRUGS (6)
  1. TRAMETINIB [Suspect]
     Indication: MALIGNANT MELANOMA
     Dosage: 2MG PER DAY
     Route: 048
     Dates: start: 20120729
  2. DABRAFENIB [Suspect]
     Indication: MALIGNANT MELANOMA
     Dosage: 150MG TWICE PER DAY
     Route: 048
     Dates: start: 20120729
  3. FRAXIPARIN [Concomitant]
     Indication: THROMBOSIS PROPHYLAXIS
     Dosage: .4ML PER DAY
     Route: 058
     Dates: start: 20130603, end: 20130606
  4. PANTOZOL [Concomitant]
     Indication: PROPHYLAXIS
     Dosage: 40MG PER DAY
     Route: 048
     Dates: start: 20130603, end: 20130606
  5. NOVALGIN [Concomitant]
     Indication: HEADACHE
     Dosage: 500MG PER DAY
     Route: 048
     Dates: start: 20130604, end: 20130604
  6. NOVALGIN [Concomitant]
     Indication: HEADACHE
     Dosage: 500MG THREE TIMES PER DAY
     Route: 048
     Dates: start: 20130606, end: 20130606

REACTIONS (1)
  - Pyrexia [Recovered/Resolved]
